FAERS Safety Report 4298850-8 (Version None)
Quarter: 2004Q1

REPORT INFORMATION
  Report Type: 
  Country: None (occurrence: None)
  Receive Date: 20040126
  Receipt Date: 20031107
  Transmission Date: 20041129
  Serious: No
  Sender: FDA-Public Use
  Company Number: USA031151991

PATIENT
  Age: 13 Year
  Sex: Male
  Weight: 45 kg

DRUGS (2)
  1. STRATTERA [Suspect]
     Indication: ATTENTION DEFICIT/HYPERACTIVITY DISORDER
     Dosage: 40 MG/TWICE DAILY
     Dates: start: 20031022
  2. WELLBUTRIN [Concomitant]

REACTIONS (4)
  - DECREASED APPETITE [None]
  - DEPRESSION [None]
  - FEELING ABNORMAL [None]
  - PRESCRIBED OVERDOSE [None]
